FAERS Safety Report 8833702 (Version 2)
Quarter: 2012Q4

REPORT INFORMATION
  Report Type: 
  Country: US (occurrence: US)
  Receive Date: 20121010
  Receipt Date: 20121101
  Transmission Date: 20130627
  Serious: No
  Sender: FDA-Public Use
  Company Number: US-VERTEX PHARMACEUTICAL INC.-2012-021866

PATIENT
  Age: 35 Year
  Sex: Female
  Weight: 73 kg

DRUGS (10)
  1. VX-950 [Suspect]
     Indication: HEPATITIS C
     Dosage: 750 mg, tid
     Route: 048
  2. PEGASYS [Concomitant]
     Indication: HEPATITIS C
     Dosage: 180 ?g, UNK
     Route: 058
  3. RIBAPAK [Concomitant]
     Indication: HEPATITIS C
     Dosage: 1200 UNK, qd
     Route: 048
  4. MULTIVITAMIN                       /00097801/ [Concomitant]
     Route: 048
  5. VITAMIN D /00107901/ [Concomitant]
     Dosage: 1000 ut, UNK
     Route: 048
  6. SLEEPCAP [Concomitant]
     Route: 048
  7. HYDROCHLOROTH [Concomitant]
     Dosage: 12.5 mg, UNK
     Route: 048
  8. OMEPRAZOLE [Concomitant]
     Dosage: 10 mg, UNK
     Route: 048
  9. WELLBUTRIN [Concomitant]
     Dosage: 200 mg, UNK
     Route: 048
  10. BENAZEPRIL [Concomitant]
     Dosage: 40 mg, UNK
     Route: 048

REACTIONS (10)
  - Dizziness [Unknown]
  - Eye swelling [Unknown]
  - Gingival swelling [Unknown]
  - Gingival bleeding [Unknown]
  - Fatigue [Not Recovered/Not Resolved]
  - Asthenia [Unknown]
  - Oedema peripheral [Unknown]
  - Rash pruritic [Unknown]
  - Vomiting [Unknown]
  - Nausea [Unknown]
